FAERS Safety Report 10428318 (Version 2)
Quarter: 2014Q4

REPORT INFORMATION
  Report Type: Spontaneous
  Country: AU (occurrence: AU)
  Receive Date: 20140903
  Receipt Date: 20141022
  Transmission Date: 20150528
  Serious: Yes (Other)
  Sender: FDA-Public Use
  Company Number: AU-ABBVIE-14P-008-1278184-00

PATIENT
  Age: 75 Year

DRUGS (1)
  1. LUCRIN DEPOT [Suspect]
     Active Substance: LEUPROLIDE ACETATE
     Indication: PRODUCT USED FOR UNKNOWN INDICATION
     Route: 050
     Dates: start: 20120415

REACTIONS (3)
  - Balance disorder [Unknown]
  - Syncope [Unknown]
  - Joint dislocation [Unknown]

NARRATIVE: CASE EVENT DATE: 20140822
